FAERS Safety Report 10160535 (Version 1)
Quarter: 2014Q2

REPORT INFORMATION
  Report Type: Spontaneous
  Country: US (occurrence: US)
  Receive Date: 20140508
  Receipt Date: 20140508
  Transmission Date: 20141212
  Serious: No
  Sender: FDA-Public Use
  Company Number: US-009507513-1405USA003002

PATIENT
  Sex: Female

DRUGS (3)
  1. TINACTIN CREAM [Suspect]
     Indication: ERYTHEMA
     Dosage: UNK, UNKNOWN
     Route: 061
     Dates: start: 20140417
  2. HYDROCORTISONE [Suspect]
     Indication: ERYTHEMA
     Dosage: UNK
     Route: 061
     Dates: start: 20140414
  3. VITAMINS (UNSPECIFIED) [Concomitant]

REACTIONS (4)
  - Rash generalised [Not Recovered/Not Resolved]
  - Pruritus [Not Recovered/Not Resolved]
  - Oropharyngeal pain [Not Recovered/Not Resolved]
  - Off label use [Unknown]
